FAERS Safety Report 16525333 (Version 2)
Quarter: 2019Q3

REPORT INFORMATION
  Report Type: Spontaneous
  Country: CA (occurrence: CA)
  Receive Date: 20190702
  Receipt Date: 20190729
  Transmission Date: 20191004
  Serious: Yes (Hospitalization)
  Sender: FDA-Public Use
  Company Number: CA-BIOMARINAP-CA-2019-124445

PATIENT
  Age: 43 Year
  Sex: Male
  Weight: 72 kg

DRUGS (7)
  1. MELOXICAM. [Concomitant]
     Active Substance: MELOXICAM
     Indication: ANTIINFLAMMATORY THERAPY
     Dosage: 50 MILLIGRAM, PRN
     Route: 048
  2. IBUPROFEN. [Concomitant]
     Active Substance: IBUPROFEN
     Indication: PREMEDICATION
     Dosage: 600 MILLIGRAM, SINGLE
     Route: 048
  3. SOLU-CORTEF [Concomitant]
     Active Substance: HYDROCORTISONE SODIUM SUCCINATE
     Indication: PREMEDICATION
     Dosage: 100 MILLIGRAM, SINGLE
     Route: 042
     Dates: start: 20190703
  4. ZANTAC [Concomitant]
     Active Substance: RANITIDINE HYDROCHLORIDE
     Indication: PREMEDICATION
     Dosage: 50 MILLIGRAM, SINGLE
     Route: 042
     Dates: start: 20190703
  5. VIMIZIM [Suspect]
     Active Substance: ELOSULFASE ALFA
     Indication: MUCOPOLYSACCHARIDOSIS IV
     Dosage: 2 MILLIGRAM/KILOGRAM, QW
     Route: 042
     Dates: start: 20110930
  6. LORATADINE. [Concomitant]
     Active Substance: LORATADINE
     Indication: PREMEDICATION
     Dosage: 10 MILLIGRAM, SINGLE
     Route: 048
  7. BENADRYL [Concomitant]
     Active Substance: DIPHENHYDRAMINE HYDROCHLORIDE
     Indication: PREMEDICATION
     Dosage: 100 MILLIGRAM, SINGLE
     Route: 042
     Dates: start: 20190703

REACTIONS (19)
  - Feeling cold [Recovering/Resolving]
  - Feeling abnormal [Recovering/Resolving]
  - Tremor [Recovering/Resolving]
  - Blood pressure increased [Recovering/Resolving]
  - Infusion site pruritus [Recovering/Resolving]
  - Infusion site erythema [Recovering/Resolving]
  - Oxygen saturation decreased [Recovered/Resolved]
  - Dysphagia [Recovering/Resolving]
  - Pallor [Recovering/Resolving]
  - Poor venous access [Recovered/Resolved]
  - Infusion site swelling [Recovered/Resolved]
  - Fatigue [Unknown]
  - Chest discomfort [Recovering/Resolving]
  - Chills [Recovering/Resolving]
  - Anaphylactic reaction [Recovering/Resolving]
  - Muscle tightness [Recovering/Resolving]
  - Throat tightness [Recovering/Resolving]
  - Infusion site urticaria [Recovering/Resolving]
  - Drug specific antibody [Unknown]

NARRATIVE: CASE EVENT DATE: 20190626
